FAERS Safety Report 4734089-7 (Version None)
Quarter: 2005Q3

REPORT INFORMATION
  Report Type: 
  Country: None (occurrence: None)
  Receive Date: 20050803
  Receipt Date: 20050803
  Transmission Date: 20060218
  Serious: Yes (Other)
  Sender: FDA-Public Use
  Company Number: None

PATIENT
  Age: 73 Year
  Sex: Female

DRUGS (2)
  1. OXALIPLATIN SANOFI [Suspect]
     Indication: COLON CANCER METASTATIC
     Dosage: 150MG EVERY 2 WEEKS INTRAVENOU
     Route: 042
     Dates: start: 20050202, end: 20050420
  2. BEVACIZUMAB 100MG/4ML GENENTECH [Suspect]
     Indication: COLON CANCER METASTATIC
     Dosage: 350MG EVERY 2 WEEKS INTRAVENOU
     Route: 042
     Dates: start: 20050202, end: 20050420

REACTIONS (2)
  - FLUSHING [None]
  - HYPOTENSION [None]
